FAERS Safety Report 5100265-7 (Version None)
Quarter: 2006Q3

REPORT INFORMATION
  Report Type: 
  Country: None (occurrence: None)
  Receive Date: 20060731
  Receipt Date: 20060515
  Transmission Date: 20061208
  Serious: No
  Sender: FDA-Public Use
  Company Number: 2006PV013852

PATIENT
  Age: 66 Year
  Sex: Male

DRUGS (6)
  1. BYETTA [Suspect]
     Indication: DIABETES MELLITUS NON-INSULIN-DEPENDENT
     Dosage: 5 MCG; BID; SC
     Route: 058
     Dates: start: 20060512
  2. METFORMIN HCL [Concomitant]
  3. GLIPIZIDE [Concomitant]
  4. AVANDIA [Concomitant]
  5. HYZAAR [Concomitant]
  6. ZOCOR [Concomitant]

REACTIONS (4)
  - BLOOD GLUCOSE INCREASED [None]
  - DIARRHOEA [None]
  - HEADACHE [None]
  - NAUSEA [None]
